FAERS Safety Report 5109490-2 (Version None)
Quarter: 2006Q3

REPORT INFORMATION
  Report Type: 
  Country: None (occurrence: None)
  Receive Date: 20060918
  Receipt Date: 20060906
  Transmission Date: 20061208
  Serious: Yes (Hospitalization)
  Sender: FDA-Public Use
  Company Number: 2006100608

PATIENT
  Age: 77 Year
  Sex: Male

DRUGS (5)
  1. VFEND [Suspect]
     Indication: PULMONARY MYCOSIS
     Dosage: 300 MG (150 MG, 2 IN 1 D), ORAL
     Route: 048
     Dates: start: 20060101, end: 20060818
  2. GASTER D (FAMOTIDINE) (FAMOTIDINE) [Suspect]
     Indication: DRUG USE FOR UNKNOWN INDICATION
     Dosage: 20 MG (10 MG, 2 IN 1 D), ORAL
     Route: 048
     Dates: start: 20060224, end: 20060818
  3. LEVOFLOXACIN [Concomitant]
  4. CLARITHROMYCIN [Concomitant]
  5. PERDIPIN (NICARDIPINE HYDROCHLORIDE) (NICARDIPINE HYDROCHLORIDE) [Concomitant]

REACTIONS (7)
  - ASTHENIA [None]
  - BLOOD ALKALINE PHOSPHATASE INCREASED [None]
  - CONDITION AGGRAVATED [None]
  - DECREASED APPETITE [None]
  - OPTIC NEURITIS [None]
  - PULMONARY MYCOSIS [None]
  - WHITE BLOOD CELL COUNT DECREASED [None]
